FAERS Safety Report 9300775 (Version 1)
Quarter: 2013Q2

REPORT INFORMATION
  Report Type: Spontaneous
  Country: IT (occurrence: IT)
  Receive Date: 20130521
  Receipt Date: 20130521
  Transmission Date: 20140414
  Serious: Yes (Hospitalization)
  Sender: FDA-Public Use
  Company Number: IT-ROCHE-1226993

PATIENT
  Sex: Male

DRUGS (12)
  1. LUCENTIS [Suspect]
     Indication: AGE-RELATED MACULAR DEGENERATION
     Route: 050
     Dates: start: 20100701
  2. LUCENTIS [Suspect]
     Route: 034
     Dates: start: 20120215, end: 20130215
  3. PARIET [Concomitant]
  4. LASIX [Concomitant]
  5. MICARDIS [Concomitant]
  6. CARDIRENE [Concomitant]
  7. DROMOS [Concomitant]
  8. ROKITAMYCIN [Concomitant]
  9. ZYLORIC [Concomitant]
  10. TORVAST [Concomitant]
  11. AMOXICILLIN [Concomitant]
  12. CARDURA [Concomitant]

REACTIONS (1)
  - Acute myocardial infarction [Recovering/Resolving]
